FAERS Safety Report 24876980 (Version 2)
Quarter: 2025Q1

REPORT INFORMATION
  Report Type: Spontaneous
  Country: JP (occurrence: JP)
  Receive Date: 20250123
  Receipt Date: 20250204
  Transmission Date: 20250409
  Serious: Yes (Other)
  Sender: ASTELLAS
  Company Number: JP-ASTELLAS-2024JP005346

PATIENT
  Age: 73 Year
  Sex: Male

DRUGS (7)
  1. VYLOY [Suspect]
     Active Substance: ZOLBETUXIMAB-CLZB
     Indication: Gastric cancer recurrent
     Dosage: INITIAL DOSE OF 1200 MG, AND 600 MG AFTER THE SECOND DOSE AT BODY SURFACE AREA OF 1.5
     Route: 042
     Dates: start: 20240702, end: 20240702
  2. VYLOY [Suspect]
     Active Substance: ZOLBETUXIMAB-CLZB
     Dosage: INITIAL DOSE OF 1200 MG, AND 600 MG AFTER THE SECOND DOSE AT BODY SURFACE AREA OF 1.5
     Route: 042
     Dates: start: 20240716
  3. VYLOY [Suspect]
     Active Substance: ZOLBETUXIMAB-CLZB
     Route: 042
     Dates: start: 20241024
  4. OXALIPLATIN [Suspect]
     Active Substance: OXALIPLATIN
     Indication: Product used for unknown indication
     Route: 065
  5. FLUOROURACIL [Suspect]
     Active Substance: FLUOROURACIL
     Indication: Product used for unknown indication
     Route: 065
  6. LEVOLEUCOVORIN CALCIUM [Suspect]
     Active Substance: LEVOLEUCOVORIN CALCIUM
     Indication: Product used for unknown indication
     Route: 065
  7. POLARAMINE [Concomitant]
     Active Substance: DEXCHLORPHENIRAMINE MALEATE
     Indication: Blister
     Route: 065

REACTIONS (6)
  - Blister [Recovered/Resolved]
  - White blood cell count decreased [Recovered/Resolved]
  - Metastases to peritoneum [Recovering/Resolving]
  - Carbohydrate antigen 19-9 increased [Recovered/Resolved]
  - Pallor [Recovered/Resolved]
  - Carbohydrate antigen 19-9 increased [Recovering/Resolving]

NARRATIVE: CASE EVENT DATE: 20240723
